FAERS Safety Report 13362053 (Version 1)
Quarter: 2017Q1

REPORT INFORMATION
  Report Type: Spontaneous
  Country: CZ (occurrence: CZ)
  Receive Date: 20170323
  Receipt Date: 20170323
  Transmission Date: 20170429
  Serious: Yes (Other)
  Sender: FDA-Public Use
  Company Number: CZ-RECORDATI RARE DISEASES-CZ-R13005-17-00072

PATIENT
  Age: 1 Year
  Sex: Male

DRUGS (7)
  1. VINBLASTINE [Suspect]
     Active Substance: VINBLASTINE
     Indication: FIBROMATOSIS
     Dosage: 10% OF THE RECOMMENDED DOSE
     Route: 065
     Dates: start: 2014, end: 2014
  2. VINBLASTINE [Suspect]
     Active Substance: VINBLASTINE
     Dosage: 10% REDUCTION OF THE ORIGINAL DOSE
     Route: 065
     Dates: start: 2014, end: 2014
  3. CYCLOPHOSPHAMIDE. [Suspect]
     Active Substance: CYCLOPHOSPHAMIDE
     Route: 065
     Dates: start: 2014
  4. VINBLASTINE [Suspect]
     Active Substance: VINBLASTINE
     Dosage: 10% OF THE RECOMMENDED DOSE
     Route: 065
     Dates: start: 2014
  5. CYCLOPHOSPHAMIDE. [Suspect]
     Active Substance: CYCLOPHOSPHAMIDE
     Indication: FIBROMATOSIS
     Route: 065
     Dates: start: 2014
  6. DACTINOMYCIN [Suspect]
     Active Substance: DACTINOMYCIN
     Indication: FIBROMATOSIS
     Route: 065
     Dates: start: 2014
  7. VINCRISTINE [Suspect]
     Active Substance: VINCRISTINE
     Indication: FIBROMATOSIS
     Route: 065
     Dates: start: 2014

REACTIONS (8)
  - Impaired gastric emptying [Unknown]
  - Subileus [Unknown]
  - Disease progression [Unknown]
  - Fibromatosis [Unknown]
  - Gastrointestinal toxicity [Unknown]
  - Off label use [Unknown]
  - Pneumonia [Unknown]
  - Febrile neutropenia [Unknown]

NARRATIVE: CASE EVENT DATE: 2014
